FAERS Safety Report 4565556-7 (Version None)
Quarter: 2005Q1

REPORT INFORMATION
  Report Type: 
  Country: None (occurrence: None)
  Receive Date: 20050125
  Receipt Date: 20050125
  Transmission Date: 20050727
  Serious: Yes (Life-Threatening, Hospitalization, Disabling)
  Sender: FDA-Public Use
  Company Number: None

PATIENT
  Sex: Male
  Weight: 63.1 kg

DRUGS (1)
  1. HEPARIN [Suspect]
     Indication: ANTICOAGULANT THERAPY
     Dosage: 1000 UNITS   PER HOUR  INTRAVENOUS
     Route: 042
     Dates: start: 20050116, end: 20050117

REACTIONS (4)
  - CEREBRAL HAEMORRHAGE [None]
  - FACIAL PALSY [None]
  - HEMIPARESIS [None]
  - HYPOAESTHESIA [None]
